FAERS Safety Report 5028652-6 (Version None)
Quarter: 2006Q2

REPORT INFORMATION
  Report Type: 
  Country: None (occurrence: None)
  Receive Date: 20060619
  Receipt Date: 20060606
  Transmission Date: 20061013
  Serious: Yes (Hospitalization)
  Sender: FDA-Public Use
  Company Number: US-ABBOTT-06P-163-0335482-00

PATIENT
  Age: 54 Year
  Sex: Female

DRUGS (1)
  1. HUMIRA [Suspect]
     Indication: PSORIATIC ARTHROPATHY
     Route: 058
     Dates: start: 20051101

REACTIONS (9)
  - ABASIA [None]
  - BLOOD PRESSURE DECREASED [None]
  - BLOOD PRESSURE INCREASED [None]
  - DEHYDRATION [None]
  - ERYTHRODERMIC PSORIASIS [None]
  - PSORIASIS [None]
  - PUSTULAR PSORIASIS [None]
  - PYREXIA [None]
  - SWELLING [None]
